FAERS Safety Report 6637876-3 (Version None)
Quarter: 2010Q1

REPORT INFORMATION
  Report Type: 
  Country: None (occurrence: None)
  Receive Date: 20100315
  Receipt Date: 20100315
  Transmission Date: 20100710
  Serious: No
  Sender: FDA-Public Use
  Company Number: None

PATIENT
  Age: 52 Year
  Sex: Female
  Weight: 78.0187 kg

DRUGS (1)
  1. PRISTIQ [Suspect]
     Indication: DEPRESSION
     Dosage: 50MG ONCE/DAY PO
     Route: 048
     Dates: start: 20081101, end: 20100204

REACTIONS (11)
  - ABNORMAL DREAMS [None]
  - ANGER [None]
  - CRYING [None]
  - DIZZINESS [None]
  - EAR PAIN [None]
  - HEADACHE [None]
  - HYPERHIDROSIS [None]
  - MOOD SWINGS [None]
  - PARAESTHESIA [None]
  - TINNITUS [None]
  - VERTIGO [None]
